FAERS Safety Report 5266676-4 (Version None)
Quarter: 2007Q1

REPORT INFORMATION
  Report Type: 
  Country: None (occurrence: None)
  Receive Date: 20070312
  Receipt Date: 20070222
  Transmission Date: 20070707
  Serious: Yes (Other)
  Sender: FDA-Public Use
  Company Number: 2006JP003932

PATIENT
  Age: 41 Year
  Sex: Female
  Weight: 77.5 kg

DRUGS (23)
  1. PROGRAF [Suspect]
     Indication: BONE MARROW TRANSPLANT
     Dosage: SEE IMAGE
     Dates: start: 20060603, end: 20060604
  2. PROGRAF [Suspect]
     Indication: BONE MARROW TRANSPLANT
     Dosage: SEE IMAGE
     Dates: start: 20060605, end: 20060605
  3. PROGRAF [Suspect]
     Indication: BONE MARROW TRANSPLANT
     Dosage: SEE IMAGE
     Dates: start: 20060611, end: 20060611
  4. PROGRAF [Suspect]
     Indication: BONE MARROW TRANSPLANT
     Dosage: SEE IMAGE
     Dates: start: 20060612, end: 20060612
  5. PROGRAF [Suspect]
     Indication: BONE MARROW TRANSPLANT
     Dosage: SEE IMAGE
     Dates: start: 20060613, end: 20060613
  6. PROGRAF [Suspect]
     Indication: BONE MARROW TRANSPLANT
     Dosage: SEE IMAGE
     Dates: start: 20060614, end: 20060614
  7. PROGRAF [Suspect]
     Indication: BONE MARROW TRANSPLANT
     Dosage: SEE IMAGE
     Dates: start: 20060615, end: 20060807
  8. PROGRAF [Suspect]
     Indication: BONE MARROW TRANSPLANT
     Dosage: SEE IMAGE
     Dates: start: 20060810
  9. FUNGUARD (MICAFUNGIN) INJECTION [Suspect]
     Indication: FUNGAL INFECTION
     Dosage: 150 MG, UNKNOWN/D, IV DRIP
     Route: 041
     Dates: start: 20060603, end: 20060614
  10. VANCOMYCIN [Concomitant]
  11. MAXIPIME [Concomitant]
  12. PRODIF INJECTION [Concomitant]
  13. ROCEPHIN [Concomitant]
  14. ZOVIRAX [Concomitant]
  15. AMIKACIN (AMIKACIN SULFATE) INJECTION [Concomitant]
  16. OMEGACIN (BIAPENEM) INJECTION [Concomitant]
  17. TARGOCID [Concomitant]
  18. SOLU-MEDROL [Concomitant]
  19. FRAGMIN (DALTEPARIN SODIUM) INJECTION [Concomitant]
  20. GASTER INJECTION [Concomitant]
  21. NEUPOGEN [Concomitant]
  22. ZYVOX [Concomitant]
  23. VENILON (IMMUNOGLOBULIN HUMAN NORMAL) INJECTION [Concomitant]

REACTIONS (8)
  - ALANINE AMINOTRANSFERASE INCREASED [None]
  - ASPARTATE AMINOTRANSFERASE INCREASED [None]
  - ENCEPHALITIS HERPES [None]
  - ENGRAFTMENT SYNDROME [None]
  - HEPATIC ENZYME INCREASED [None]
  - HYPONATRAEMIA [None]
  - THROMBOCYTOPENIA [None]
  - THROMBOTIC MICROANGIOPATHY [None]
